FAERS Safety Report 8626450 (Version 3)
Quarter: 2012Q4

REPORT INFORMATION
  Report Type: 
  Country: AU (occurrence: AU)
  Receive Date: 20120620
  Receipt Date: 20121206
  Transmission Date: 20130627
  Serious: Yes (Other)
  Sender: FDA-Public Use
  Company Number: AU-CELGENEUS-008-21880-12060801

PATIENT
  Age: 61 Year
  Sex: Female

DRUGS (2)
  1. REVLIMID [Suspect]
     Indication: 5Q MINUS MDS
     Dosage: 10 Milligram
     Route: 048
     Dates: start: 201203
  2. REVLIMID [Suspect]
     Route: 048
     Dates: start: 20120618

REACTIONS (1)
  - Autoimmune thyroiditis [Recovered/Resolved]
